FAERS Safety Report 17287265 (Version 1)
Quarter: 2020Q1

REPORT INFORMATION
  Report Type: Spontaneous
  Country: US (occurrence: US)
  Receive Date: 20200120
  Receipt Date: 20200120
  Transmission Date: 20200409
  Serious: Yes (Hospitalization)
  Sender: FDA-Public Use
  Company Number: US-EMCURE PHARMACEUTICALS LTD-2020-EPL-0048

PATIENT
  Age: 72 Year
  Sex: Female

DRUGS (9)
  1. LOSARTAN. [Concomitant]
     Active Substance: LOSARTAN
     Indication: HYPERTENSION
     Dosage: UNK
  2. EZETIMIBE. [Concomitant]
     Active Substance: EZETIMIBE
     Indication: DYSLIPIDAEMIA
     Dosage: UNK
  3. ADENOSINE. [Suspect]
     Active Substance: ADENOSINE
     Indication: CARDIAC PHARMACOLOGIC STRESS TEST
  4. ADENOSINE. [Suspect]
     Active Substance: ADENOSINE
     Indication: SINGLE PHOTON EMISSION COMPUTERISED TOMOGRAM
     Dosage: 31 MILLIGRAM OVER 4 MINUTES
     Route: 042
  5. ALBUTEROL                          /00139501/ [Suspect]
     Active Substance: ALBUTEROL
     Indication: BRONCHOSPASM
     Dosage: NO EXCESSIVE DOSE
  6. FISH OIL [Concomitant]
     Active Substance: FISH OIL
     Indication: DYSLIPIDAEMIA
     Dosage: UNK
  7. IPRATROPIUM/ALBUTEROL [Suspect]
     Active Substance: ALBUTEROL\IPRATROPIUM
     Indication: BRONCHOSPASM
     Dosage: UNK
  8. METOPROLOL. [Concomitant]
     Active Substance: METOPROLOL
     Indication: HYPERTENSION
     Dosage: UNK
  9. EPINEPHRINE. [Suspect]
     Active Substance: EPINEPHRINE
     Indication: BRONCHOSPASM
     Dosage: 0.5 MILLIGRAM
     Route: 030

REACTIONS (4)
  - Hypoxia [Recovering/Resolving]
  - Bronchospasm [Recovering/Resolving]
  - Respiratory distress [Recovering/Resolving]
  - Stress cardiomyopathy [Recovered/Resolved]
